FAERS Safety Report 24751677 (Version 1)
Quarter: 2024Q4

REPORT INFORMATION
  Report Type: Report from Study
  Country: US (occurrence: US)
  Receive Date: 20241219
  Receipt Date: 20241219
  Transmission Date: 20250114
  Serious: Yes (Other)
  Sender: ACADIA PHARMACEUTICALS
  Company Number: US-ACADIA PHARMACEUTICALS INC.-ACA-2024-PIM-008178

PATIENT
  Sex: Male

DRUGS (1)
  1. NUPLAZID [Suspect]
     Active Substance: PIMAVANSERIN TARTRATE
     Indication: Parkinson^s disease
     Dosage: 34 MILLIGRAM, QD
     Route: 048
     Dates: start: 202209

REACTIONS (9)
  - Hallucination [Unknown]
  - Musculoskeletal stiffness [Unknown]
  - Freezing phenomenon [Unknown]
  - Tremor [Unknown]
  - Mobility decreased [Unknown]
  - Head titubation [Unknown]
  - Insomnia [Unknown]
  - Physiotherapy [Unknown]
  - Confusional state [Unknown]
